FAERS Safety Report 4690721-8 (Version None)
Quarter: 2005Q2

REPORT INFORMATION
  Report Type: 
  Country: None (occurrence: None)
  Receive Date: 20050615
  Receipt Date: 20050606
  Transmission Date: 20051028
  Serious: Yes (Other)
  Sender: FDA-Public Use
  Company Number: JP-SANOFI-SYNTHELABO-A01200504070

PATIENT
  Sex: Male

DRUGS (3)
  1. MYSLEE [Suspect]
     Indication: DRUG USE FOR UNKNOWN INDICATION
     Route: 048
  2. MYSLEE [Suspect]
     Dosage: 3/4 TABLETS ONCE
     Route: 048
     Dates: start: 20050606, end: 20050606
  3. ALCOHOL [Concomitant]
     Route: 048
     Dates: start: 20050606, end: 20050606

REACTIONS (1)
  - RESPIRATORY DEPRESSION [None]
